FAERS Safety Report 9515141 (Version 1)
Quarter: 2013Q1

REPORT INFORMATION
  Report Type: Spontaneous
  Country: US (occurrence: None)
  Receive Date: 20130305
  Receipt Date: 20130305
  Transmission Date: 20140127
  Serious: Yes (Hospitalization)
  Sender: FDA-Public Use
  Company Number: 163-21880-12121988

PATIENT
  Age: 76 Year
  Sex: Male
  Weight: 74.84 kg

DRUGS (10)
  1. REVLIMID [Suspect]
     Indication: MYELODYSPLASTIC SYNDROME
     Dosage: 5 MG, 1 IN 1 D, PO
     Route: 048
     Dates: start: 20110115
  2. ARANESP (DARBPOETIN ALFA) (UNKNOWN) [Concomitant]
  3. COENZYME Q10 (UBIDECARENONE) (UNKNOWN) [Concomitant]
  4. FINASTERIDE (FINASTERIDE) (TABLETS) [Concomitant]
  5. LIPITOR (ATORVASTATIN) (TABLETS) [Concomitant]
  6. OCUTABS (OCUTABS WITH LUTEIN) (TABLETS) [Concomitant]
  7. RISPERIDONE (RISPERIDONE) (TABLETS) [Concomitant]
  8. VITAMIN B-12 (CYANOCOBALAMIN) (UNKNOWN) [Concomitant]
  9. VITAMIN B-6 (PYRIDOXINE HYDROCHLORIDE) (TABLETS) [Concomitant]
  10. FLOMAX (TAMSULOSIN HYDROCHLORIDE) (CAPSULES) [Concomitant]

REACTIONS (1)
  - Epistaxis [None]
